FAERS Safety Report 8176577-X (Version None)
Quarter: 2012Q1

REPORT INFORMATION
  Report Type: 
  Country: None (occurrence: None)
  Receive Date: 20120120
  Receipt Date: 20111101
  Transmission Date: 20120608
  Serious: Yes (Life-Threatening)
  Sender: FDA-Public Use
  Company Number: 2011SP051451

PATIENT
  Age: 55 Year
  Sex: Female

DRUGS (4)
  1. LORAZEPAM [Concomitant]
  2. SINGULAIR [Concomitant]
  3. ALBUTEROL [Concomitant]
  4. DULERA ORAL INHALATION [Suspect]
     Indication: CHRONIC OBSTRUCTIVE PULMONARY DISEASE
     Dosage: 2 DF;BID;INH
     Route: 055
     Dates: start: 20110501, end: 20110601

REACTIONS (1)
  - DRUG INEFFECTIVE [None]
